FAERS Safety Report 14661943 (Version 1)
Quarter: 2018Q1

REPORT INFORMATION
  Report Type: Spontaneous
  Country: US (occurrence: US)
  Receive Date: 20180320
  Receipt Date: 20180320
  Transmission Date: 20180509
  Serious: No
  Sender: FDA-Public Use
  Company Number: US-ASTRAZENECA-2018SE32853

PATIENT
  Sex: Female
  Weight: 44 kg

DRUGS (5)
  1. ATORVASTATIN [Concomitant]
     Active Substance: ATORVASTATIN
     Indication: BLOOD CHOLESTEROL ABNORMAL
     Route: 048
  2. TUDORZA PRESSAIR [Suspect]
     Active Substance: ACLIDINIUM BROMIDE
     Indication: CHRONIC OBSTRUCTIVE PULMONARY DISEASE
     Route: 055
  3. PARCEVA [Concomitant]
     Indication: LUNG NEOPLASM MALIGNANT
     Dosage: TWO 25 MG PILLS ONE DAY, AND THEN THE FOLLOWING DAY TAKES 100 MG, AND ALTERNATES THE DOSES EACH DAY.
     Route: 048
     Dates: start: 2006
  4. FUROSEMIDE. [Concomitant]
     Active Substance: FUROSEMIDE
     Indication: DIURETIC THERAPY
     Route: 048
  5. METOPROLOL. [Concomitant]
     Active Substance: METOPROLOL
     Indication: CARDIAC DISORDER
     Dosage: 12.5 MG IN THE MORNING AND A HALF, 12.5 MG AT NIGHT
     Route: 048

REACTIONS (4)
  - Intentional product misuse [Unknown]
  - Drug dose omission [Unknown]
  - Cardiac disorder [Unknown]
  - Device malfunction [Unknown]
